FAERS Safety Report 23638046 (Version 1)
Quarter: 2024Q1

REPORT INFORMATION
  Report Type: Spontaneous
  Country: EG (occurrence: EG)
  Receive Date: 20240315
  Receipt Date: 20240315
  Transmission Date: 20240410
  Serious: Yes (Death, Life-Threatening, Other)
  Sender: FDA-Public Use
  Company Number: EG-SA-SAC20240313000734

PATIENT
  Age: 64 Year
  Sex: Female

DRUGS (8)
  1. PLAVIX [Suspect]
     Active Substance: CLOPIDOGREL BISULFATE
     Indication: Cardiac failure
     Dosage: UNK UNK, QD
     Route: 048
     Dates: start: 20231117, end: 20231124
  2. ASPIRIN [Suspect]
     Active Substance: ASPIRIN
     Indication: Cardiac failure
     Dosage: UNK UNK, QD
     Route: 048
     Dates: start: 20231117, end: 20231124
  3. ATORVASTATIN CALCIUM [Suspect]
     Active Substance: ATORVASTATIN CALCIUM
     Indication: Cardiac failure
     Dosage: UNK UNK, QD
     Route: 048
     Dates: start: 20231117, end: 20231124
  4. CAPOTEN [Concomitant]
     Active Substance: CAPTOPRIL
     Indication: Hypertension
     Dosage: UNK UNK, Q8H
     Dates: start: 20231117, end: 20231124
  5. NORVASC [Concomitant]
     Active Substance: AMLODIPINE BESYLATE
     Indication: Hypertension
     Dosage: UNK UNK, QD
     Dates: start: 20231117, end: 20231124
  6. CORDARONE [Concomitant]
     Active Substance: AMIODARONE HYDROCHLORIDE
     Indication: Heart rate irregular
     Dosage: UNK
     Dates: start: 20231122
  7. AMPICILLIN [Concomitant]
     Active Substance: AMPICILLIN
     Indication: Heart rate irregular
     Dosage: UNK
     Dates: start: 20231122
  8. SODIUM CHLORIDE [Concomitant]
     Active Substance: SODIUM CHLORIDE
     Indication: Heart rate irregular
     Dosage: UNK
     Dates: start: 20231122

REACTIONS (3)
  - Critical illness [Fatal]
  - Thrombocytopenia [Fatal]
  - Hepatic enzyme increased [Fatal]
